FAERS Safety Report 6240786-7 (Version None)
Quarter: 2009Q2

REPORT INFORMATION
  Report Type: 
  Country: None (occurrence: None)
  Receive Date: 20090619
  Receipt Date: 20090619
  Transmission Date: 20091009
  Serious: Yes (Hospitalization)
  Sender: FDA-Public Use
  Company Number: None

PATIENT
  Sex: Male
  Weight: 32 kg

DRUGS (5)
  1. METHOTREXATE SODIUM [Suspect]
     Dosage: 20740 MG
     Dates: end: 20090601
  2. VINCRISTINE SULFATE [Suspect]
     Dosage: 6.4 MG
     Dates: end: 20090601
  3. CYTARABINE [Suspect]
     Dosage: 1320 MG
     Dates: end: 20090316
  4. DAUNORUBICIN HCL [Suspect]
     Dosage: 101 MG
     Dates: end: 20090114
  5. MERCAPTOPURINE [Suspect]
     Dosage: 1675 MG
     Dates: end: 20090614

REACTIONS (1)
  - DRUG TOXICITY [None]
